FAERS Safety Report 7717466-1 (Version None)
Quarter: 2011Q3

REPORT INFORMATION
  Report Type: 
  Country: None (occurrence: None)
  Receive Date: 20110823
  Receipt Date: 20110516
  Transmission Date: 20111222
  Serious: Yes (Hospitalization)
  Sender: FDA-Public Use
  Company Number: 20110516CINRY2012

PATIENT
  Age: 31 Year
  Sex: Female

DRUGS (2)
  1. CINRYZE [Suspect]
     Indication: HEREDITARY ANGIOEDEMA
     Dosage: (1500 UNIT, EVERY MONDAY AND FRIDAY), INTRAVENOUS
     Route: 042
     Dates: start: 20090401
  2. CINRYZE [Suspect]
     Indication: PROPHYLAXIS
     Dosage: (1500 UNIT, EVERY MONDAY AND FRIDAY), INTRAVENOUS
     Route: 042
     Dates: start: 20090401

REACTIONS (5)
  - HEREDITARY ANGIOEDEMA [None]
  - ANGIOEDEMA [None]
  - INAPPROPRIATE SCHEDULE OF DRUG ADMINISTRATION [None]
  - STRESS [None]
  - THERAPY REGIMEN CHANGED [None]
